FAERS Safety Report 10525106 (Version 1)
Quarter: 2014Q4

REPORT INFORMATION
  Report Type: Spontaneous
  Country: US (occurrence: None)
  Receive Date: 20141015
  Receipt Date: 20141015
  Transmission Date: 20150528
  Serious: Yes (Hospitalization)
  Sender: FDA-Public Use
  Company Number: None

PATIENT
  Age: 48 Year
  Sex: Female
  Weight: 80.3 kg

DRUGS (2)
  1. PHENTERMINE [Suspect]
     Active Substance: PHENTERMINE
     Indication: DEPRESSION
     Dosage: 1 TABLET
     Route: 048
     Dates: start: 20140925
  2. SELEGILINE [Suspect]
     Active Substance: SELEGILINE
     Indication: DEPRESSION
     Dosage: 1 PATCH
     Route: 062
     Dates: start: 20140925

REACTIONS (6)
  - Accidental exposure to product [None]
  - Dizziness [None]
  - Nausea [None]
  - Drug interaction [None]
  - Hyperhidrosis [None]
  - Headache [None]

NARRATIVE: CASE EVENT DATE: 20140925
